FAERS Safety Report 7583568 (Version 4)
Quarter: 2013Q1

REPORT INFORMATION
  Report Type: Spontaneous
  Country: US (occurrence: US)
  Receive Date: 20100914
  Receipt Date: 20130124
  Transmission Date: 20140127
  Serious: Yes (Hospitalization)
  Sender: FDA-Public Use
  Company Number: US-BAYER-201033125NA

PATIENT
  Age: 38 Year
  Sex: Female
  Weight: 80.73 kg

DRUGS (17)
  1. YAZ [Suspect]
     Indication: HORMONE THERAPY
     Dosage: UNK
     Route: 048
     Dates: start: 200706, end: 200712
  2. YAZ [Suspect]
     Indication: HORMONE THERAPY
     Dosage: UNK
     Dates: start: 20071124, end: 20071224
  3. SPIRONOLACTONE [Concomitant]
     Dosage: UNK
     Dates: start: 2000, end: 2010
  4. CEPHALEXIN [Concomitant]
     Dosage: UNK
     Dates: start: 20071120, end: 20071130
  5. APAP CODEINE [Concomitant]
     Indication: PAIN
     Dosage: 1-2 TABLETS DAILY
     Dates: start: 20071204, end: 20071219
  6. METFORMIN [Concomitant]
     Indication: DIABETES MELLITUS
     Dosage: UNK
  7. PHENTERMINE [Concomitant]
  8. IBUPROFEN [Concomitant]
     Dosage: 800 MG, UNK
     Dates: start: 2005
  9. IBUPROFEN [Concomitant]
     Dosage: 800 MG, UNK
     Dates: start: 2006
  10. IBUPROFEN [Concomitant]
     Dosage: 800 MG, UNK
     Dates: start: 2007
  11. WELLBUTRIN [Concomitant]
     Indication: DEPRESSION
     Dosage: UNK
     Dates: start: 200312, end: 200708
  12. GLUCOPHAGE [Concomitant]
     Dosage: UNK
     Dates: start: 20071009
  13. FLEXERIL [Concomitant]
     Indication: BACK DISORDER
     Dosage: 10 MG, UNK
     Dates: start: 20071009
  14. MOTRIN [Concomitant]
     Dosage: 800 MG, UNK
     Dates: start: 20071009
  15. OXYCODONE/APAP [Concomitant]
     Dosage: UNK, 5-500 MG
     Dates: start: 20071115
  16. TYLENOL WITH CODEINE [Concomitant]
  17. TYLOX [Concomitant]

REACTIONS (4)
  - Pulmonary embolism [None]
  - Depression [None]
  - Anxiety [None]
  - Off label use [None]
